FAERS Safety Report 21857415 (Version 2)
Quarter: 2023Q1

REPORT INFORMATION
  Report Type: Spontaneous
  Country: GB (occurrence: GB)
  Receive Date: 20230113
  Receipt Date: 20230125
  Transmission Date: 20230418
  Serious: Yes (Death, Life-Threatening, Hospitalization, Other)
  Sender: FDA-Public Use
  Company Number: GB-MHRA-MED-202212311732025540-HFJDW

PATIENT
  Age: 59 Year
  Sex: Male
  Weight: 84 kg

DRUGS (5)
  1. LAMOTRIGINE [Suspect]
     Active Substance: LAMOTRIGINE
     Indication: Seizure prophylaxis
     Dosage: 1 DOSAGE FORM, ONCE A DAY
     Route: 065
     Dates: start: 20220626, end: 20220809
  2. FELODIPINE [Concomitant]
     Active Substance: FELODIPINE
     Indication: Product used for unknown indication
     Dosage: UNK
     Route: 065
  3. RAMIPRIL [Concomitant]
     Active Substance: RAMIPRIL
     Indication: Hypertension
     Dosage: UNK
     Route: 065
  4. WARFARIN [Concomitant]
     Active Substance: WARFARIN
     Indication: Adverse drug reaction
     Dosage: UNK
     Route: 065
  5. WARFARIN [Concomitant]
     Active Substance: WARFARIN
     Indication: Aortic valve replacement

REACTIONS (4)
  - Haemophagocytic lymphohistiocytosis [Fatal]
  - Palpitations [Not Recovered/Not Resolved]
  - Seizure [Not Recovered/Not Resolved]
  - Cardiac arrest [Not Recovered/Not Resolved]
